FAERS Safety Report 24703340 (Version 2)
Quarter: 2025Q4

REPORT INFORMATION
  Report Type: Spontaneous
  Country: KR (occurrence: KR)
  Receive Date: 20241205
  Receipt Date: 20251223
  Transmission Date: 20260117
  Serious: Yes (Hospitalization, Other)
  Sender: CELLTRION
  Company Number: KR-CELLTRION INC.-2024KR029733

PATIENT

DRUGS (1)
  1. INFLIXIMAB [Suspect]
     Active Substance: INFLIXIMAB
     Indication: Colitis ulcerative
     Dosage: UNK
     Route: 058
     Dates: start: 20240730, end: 20241105

REACTIONS (1)
  - Colitis ulcerative [Recovered/Resolved]

NARRATIVE: CASE EVENT DATE: 20240820
